FAERS Safety Report 14181615 (Version 1)
Quarter: 2017Q4

REPORT INFORMATION
  Report Type: Spontaneous
  Country: US (occurrence: US)
  Receive Date: 20171113
  Receipt Date: 20171113
  Transmission Date: 20180321
  Serious: Yes (Other)
  Sender: FDA-Public Use
  Company Number: US-GLENMARK PHARMACEUTICALS-2017GMK029666

PATIENT

DRUGS (22)
  1. SKELAXIN [Suspect]
     Active Substance: METAXALONE
     Indication: NEUROMUSCULAR PAIN
  2. OXYCODONE [Suspect]
     Active Substance: OXYCODONE
     Indication: PAIN
     Dosage: UNK
     Route: 065
     Dates: start: 2006
  3. ROSUVASTATIN CALCIUM. [Concomitant]
     Active Substance: ROSUVASTATIN CALCIUM
     Indication: PRODUCT USED FOR UNKNOWN INDICATION
     Dosage: 1 DF, OD
     Route: 048
     Dates: start: 2017
  4. SKELAXIN [Suspect]
     Active Substance: METAXALONE
     Indication: FIBROMYALGIA
  5. GABAPENTIN TABLETS [Suspect]
     Active Substance: GABAPENTIN
     Indication: FIBROMYALGIA
     Dosage: 2 TABLETS 4 TIMES A DAY
     Route: 048
     Dates: start: 2004
  6. LAMOTRIGINE. [Suspect]
     Active Substance: LAMOTRIGINE
     Indication: ANXIETY
  7. ACETAMINOPHEN W/HYDROCODONE [Concomitant]
     Active Substance: ACETAMINOPHEN\HYDROCODONE
     Indication: PAIN
     Dosage: 1 TABLET EVERY 4-6 HOURS
     Route: 048
  8. DULOXETINE. [Concomitant]
     Active Substance: DULOXETINE
     Indication: DEPRESSION
     Dosage: 2 DF, OD
     Route: 048
  9. HYDROCODONE [Concomitant]
     Active Substance: HYDROCODONE
     Indication: PRODUCT USED FOR UNKNOWN INDICATION
     Dosage: UNK, TID
     Route: 065
  10. GABAPENTIN TABLETS [Suspect]
     Active Substance: GABAPENTIN
     Indication: COMPLEX REGIONAL PAIN SYNDROME
     Dosage: 1 DF, TID
     Route: 048
  11. LAMOTRIGINE. [Suspect]
     Active Substance: LAMOTRIGINE
     Indication: ANTIDEPRESSANT THERAPY
     Dosage: 25 MG, TID
     Route: 048
     Dates: end: 2017
  12. LEVOTHYROXINE. [Concomitant]
     Active Substance: LEVOTHYROXINE
     Indication: THYROID DISORDER
     Dosage: 1 DF, OD
     Route: 048
  13. SKELAXIN [Suspect]
     Active Substance: METAXALONE
     Indication: STENOSIS
  14. BACLOFEN. [Suspect]
     Active Substance: BACLOFEN
     Indication: TREMOR
     Dosage: 20 MG, 1 IN THE MORNING AND 2 AT BEDTIME
     Route: 048
     Dates: start: 2004
  15. QUETIAPINE FUMARATE. [Concomitant]
     Active Substance: QUETIAPINE FUMARATE
     Indication: ANXIETY
     Dosage: 1 DF, HS
     Route: 048
  16. SKELAXIN [Suspect]
     Active Substance: METAXALONE
     Indication: COMPLEX REGIONAL PAIN SYNDROME
     Dosage: UNK
     Route: 065
     Dates: start: 2004, end: 2015
  17. ZETIA [Concomitant]
     Active Substance: EZETIMIBE
     Indication: PRODUCT USED FOR UNKNOWN INDICATION
     Dosage: UNK
     Route: 065
  18. LIDOCAINE. [Concomitant]
     Active Substance: LIDOCAINE
     Indication: PRODUCT USED FOR UNKNOWN INDICATION
     Dosage: UNK
     Route: 065
     Dates: start: 2000
  19. FLUOXETINE [Concomitant]
     Active Substance: FLUOXETINE HYDROCHLORIDE
     Indication: DEPRESSION
     Dosage: 20 MG, OD
     Route: 048
  20. CRISABOROLE [Concomitant]
     Active Substance: CRISABOROLE
     Indication: PSORIASIS
     Dosage: UNK
     Route: 065
  21. ESZOPICLONE. [Concomitant]
     Active Substance: ESZOPICLONE
     Indication: SLEEP DISORDER
     Dosage: 1 DF, HS
     Route: 048
  22. AMLODIPINE [Concomitant]
     Active Substance: AMLODIPINE BESYLATE
     Indication: PRODUCT USED FOR UNKNOWN INDICATION
     Dosage: 5 MG ONCE IN THE MORNING AND 2 AT NIGHT
     Route: 048

REACTIONS (9)
  - Concussion [Recovered/Resolved]
  - Product use in unapproved indication [Unknown]
  - Ankle fracture [Recovered/Resolved]
  - Tremor [Unknown]
  - Fall [Recovered/Resolved]
  - Lower limb fracture [Recovered/Resolved]
  - Foot fracture [Recovered/Resolved]
  - Tooth disorder [Unknown]
  - Herpes zoster [Unknown]

NARRATIVE: CASE EVENT DATE: 2008
